FAERS Safety Report 20324114 (Version 1)
Quarter: 2022Q1

REPORT INFORMATION
  Report Type: Spontaneous
  Country: US (occurrence: US)
  Receive Date: 20220111
  Receipt Date: 20220111
  Transmission Date: 20220423
  Serious: No
  Sender: FDA-Public Use
  Company Number: US-PFIZER INC-202101352740

PATIENT
  Sex: Female

DRUGS (2)
  1. FENTANYL CITRATE [Suspect]
     Active Substance: FENTANYL CITRATE
     Indication: Pain management
     Dosage: UNK
     Route: 008
  2. ROPIVACAINE HYDROCHLORIDE [Suspect]
     Active Substance: ROPIVACAINE HYDROCHLORIDE
     Indication: Pain management
     Dosage: UNK
     Route: 008

REACTIONS (2)
  - Drug ineffective [Recovered/Resolved]
  - Product temperature excursion issue [Recovered/Resolved]
